FAERS Safety Report 17955150 (Version 1)
Quarter: 2020Q2

REPORT INFORMATION
  Report Type: Spontaneous
  Country: US (occurrence: US)
  Receive Date: 20200626
  Receipt Date: 20200626
  Transmission Date: 20200714
  Serious: No
  Sender: FDA-Public Use
  Company Number: None

PATIENT
  Age: 45 Year
  Sex: Male

DRUGS (1)
  1. ADEFOVIR DIPIVOXIL TAB 10MG [Suspect]
     Active Substance: ADEFOVIR DIPIVOXIL
     Indication: CHRONIC HEPATITIS B
     Route: 048

REACTIONS (2)
  - Off label use [None]
  - Kidney transplant rejection [None]

NARRATIVE: CASE EVENT DATE: 20200626
